FAERS Safety Report 18354172 (Version 3)
Quarter: 2021Q1

REPORT INFORMATION
  Report Type: Report from Study
  Country: US (occurrence: US)
  Receive Date: 20201006
  Receipt Date: 20210223
  Transmission Date: 20210419
  Serious: Yes (Other)
  Sender: FDA-Public Use
  Company Number: US-BIOGEN-2020BI00931337

PATIENT
  Age: 65 Year
  Sex: Female

DRUGS (2)
  1. TYSABRI [Suspect]
     Active Substance: NATALIZUMAB
     Route: 042
  2. TYSABRI [Suspect]
     Active Substance: NATALIZUMAB
     Indication: MULTIPLE SCLEROSIS
     Route: 065
     Dates: start: 20200603

REACTIONS (12)
  - Loss of consciousness [Recovered/Resolved]
  - Dehydration [Unknown]
  - Blood pressure abnormal [Unknown]
  - Depression [Not Recovered/Not Resolved]
  - Weight decreased [Unknown]
  - Unintentional medical device removal [Unknown]
  - Primary progressive multiple sclerosis [Not Recovered/Not Resolved]
  - Chronic kidney disease [Not Recovered/Not Resolved]
  - Drug ineffective [Not Recovered/Not Resolved]
  - Breast cancer female [Unknown]
  - Poor venous access [Unknown]
  - Headache [Unknown]

NARRATIVE: CASE EVENT DATE: 20200923
